FAERS Safety Report 20751261 (Version 1)
Quarter: 2022Q2

REPORT INFORMATION
  Report Type: Spontaneous
  Country: US (occurrence: US)
  Receive Date: 20220426
  Receipt Date: 20220426
  Transmission Date: 20220721
  Serious: Yes (Hospitalization, Other)
  Sender: FDA-Public Use
  Company Number: US-PAIPHARMA-2022-US-008331

PATIENT
  Age: 50 Year
  Sex: Female

DRUGS (2)
  1. NORTRIPTYLINE HYDROCHLORIDE [Suspect]
     Active Substance: NORTRIPTYLINE HYDROCHLORIDE
     Indication: Product used for unknown indication
  2. LAMOTRIGINE [Suspect]
     Active Substance: LAMOTRIGINE
     Indication: Seizure

REACTIONS (2)
  - Brugada syndrome [Recovered/Resolved]
  - Unmasking of previously unidentified disease [Recovered/Resolved]
